FAERS Safety Report 19821342 (Version 1)
Quarter: 2021Q3

REPORT INFORMATION
  Report Type: Spontaneous
  Country: US (occurrence: US)
  Receive Date: 20210913
  Receipt Date: 20210913
  Transmission Date: 20211014
  Serious: Yes (Disabling)
  Sender: FDA-Public Use
  Company Number: None

PATIENT
  Age: 35 Year
  Sex: Female
  Weight: 80.1 kg

DRUGS (6)
  1. ZINC. [Concomitant]
     Active Substance: ZINC
  2. AZELSTELINE [Concomitant]
  3. SPIRIVA [Suspect]
     Active Substance: TIOTROPIUM BROMIDE MONOHYDRATE
     Indication: ASTHMA
     Dosage: ?          QUANTITY:2 PUFF(S);?
     Route: 055
     Dates: start: 20190601, end: 20210912
  4. TURMERIC [Concomitant]
     Active Substance: HERBALS\TURMERIC
  5. DYAZIDE [Concomitant]
     Active Substance: HYDROCHLOROTHIAZIDE\TRIAMTERENE
  6. MAGNESIUM [Concomitant]
     Active Substance: MAGNESIUM

REACTIONS (6)
  - Weight increased [None]
  - Urinary retention [None]
  - Hypokalaemia [None]
  - Blindness [None]
  - Fluid retention [None]
  - Chest pain [None]

NARRATIVE: CASE EVENT DATE: 20210912
